FAERS Safety Report 13743552 (Version 11)
Quarter: 2018Q2

REPORT INFORMATION
  Report Type: Spontaneous
  Country: US (occurrence: US)
  Receive Date: 20170711
  Receipt Date: 20180423
  Transmission Date: 20180711
  Serious: Yes (Other)
  Sender: FDA-Public Use
  Company Number: US-ACTELION-A-NJ2017-156341

PATIENT
  Age: 72 Year
  Sex: Female
  Weight: 46.71 kg

DRUGS (7)
  1. LETAIRIS [Suspect]
     Active Substance: AMBRISENTAN
     Dosage: 20 MG, QD
     Route: 065
     Dates: start: 20161028
  2. UPTRAVI [Suspect]
     Active Substance: SELEXIPAG
     Dosage: 1000 MCG, BID
     Route: 048
  3. LETAIRIS [Suspect]
     Active Substance: AMBRISENTAN
     Indication: PRODUCT USED FOR UNKNOWN INDICATION
     Dosage: 10 MG, QD
     Route: 065
     Dates: start: 20161028
  4. UPTRAVI [Suspect]
     Active Substance: SELEXIPAG
     Indication: PULMONARY ARTERIAL HYPERTENSION
     Dosage: 1600 MCG, BID
     Route: 048
     Dates: start: 20170730
  5. OXYGEN. [Concomitant]
     Active Substance: OXYGEN
  6. SILDENAFIL CITRATE. [Concomitant]
     Active Substance: SILDENAFIL CITRATE
  7. UPTRAVI [Suspect]
     Active Substance: SELEXIPAG
     Dosage: 800 MCG, BID
     Route: 048
     Dates: start: 20170731

REACTIONS (26)
  - Scleroderma [Not Recovered/Not Resolved]
  - Ear congestion [Not Recovered/Not Resolved]
  - Visual impairment [Not Recovered/Not Resolved]
  - Choking [Recovered/Resolved]
  - Dysphagia [Not Recovered/Not Resolved]
  - Pain [Unknown]
  - Weight fluctuation [Unknown]
  - Decreased appetite [Not Recovered/Not Resolved]
  - Weight decreased [Unknown]
  - Headache [Unknown]
  - Myalgia [Not Recovered/Not Resolved]
  - Nasal dryness [Unknown]
  - Epistaxis [Unknown]
  - Retching [Recovered/Resolved]
  - Nausea [Recovering/Resolving]
  - Throat irritation [Not Recovered/Not Resolved]
  - Middle ear effusion [Not Recovered/Not Resolved]
  - Pruritus [Recovering/Resolving]
  - Sleep disorder [Unknown]
  - Oral surgery [Unknown]
  - Upper-airway cough syndrome [Not Recovered/Not Resolved]
  - Feeling abnormal [Not Recovered/Not Resolved]
  - Unevaluable event [Not Recovered/Not Resolved]
  - Nasal congestion [Not Recovered/Not Resolved]
  - Intentional product use issue [Unknown]
  - Oxygen therapy [Unknown]

NARRATIVE: CASE EVENT DATE: 20170731
